FAERS Safety Report 5531989-5 (Version None)
Quarter: 2007Q4

REPORT INFORMATION
  Report Type: 
  Country: None (occurrence: None)
  Receive Date: 20071203
  Receipt Date: 20071121
  Transmission Date: 20080405
  Serious: Yes (Other)
  Sender: FDA-Public Use
  Company Number: JP-MERCK-0710USA05658

PATIENT
  Age: 71 Year
  Sex: Female

DRUGS (4)
  1. ZETIA [Suspect]
     Indication: HYPERCHOLESTEROLAEMIA
     Route: 048
     Dates: start: 20070709, end: 20071011
  2. TELMISARTAN [Concomitant]
     Route: 065
     Dates: start: 20030101
  3. PIROXICAM [Concomitant]
     Route: 065
     Dates: start: 20070401
  4. AMLODIPINE BESYLATE [Concomitant]
     Route: 065
     Dates: start: 20070626

REACTIONS (3)
  - ALANINE AMINOTRANSFERASE INCREASED [None]
  - ASPARTATE AMINOTRANSFERASE INCREASED [None]
  - HEPATIC FUNCTION ABNORMAL [None]
